FAERS Safety Report 6283535-9 (Version None)
Quarter: 2009Q3

REPORT INFORMATION
  Report Type: 
  Country: None (occurrence: None)
  Receive Date: 20090724
  Receipt Date: 20090416
  Transmission Date: 20100115
  Serious: No
  Sender: FDA-Public Use
  Company Number: US-ALEXION-A200900332

PATIENT
  Sex: Male

DRUGS (6)
  1. SOLIRIS [Suspect]
     Indication: PAROXYSMAL NOCTURNAL HAEMOGLOBINURIA
     Dosage: 600 MG, QW
     Route: 042
     Dates: start: 20081203, end: 20081224
  2. SOLIRIS [Suspect]
     Dosage: 900 MG, Q2W
     Route: 042
     Dates: start: 20081231
  3. FOLIC ACID [Suspect]
     Indication: PAROXYSMAL NOCTURNAL HAEMOGLOBINURIA
     Dosage: 1 MG, QD
     Route: 048
  4. PREDNISONE TAB [Concomitant]
     Indication: PAROXYSMAL NOCTURNAL HAEMOGLOBINURIA
     Dosage: 10 MG, QOD
     Route: 048
  5. VITAMIN B12                        /00056201/ [Concomitant]
     Dosage: 1000 UG, WEEKLY
  6. IRON [Concomitant]
     Dosage: 325 MG, TID
     Route: 048

REACTIONS (2)
  - BACK PAIN [None]
  - HEADACHE [None]
